FAERS Safety Report 21691500 (Version 4)
Quarter: 2022Q4

REPORT INFORMATION
  Report Type: Report from Study
  Country: US (occurrence: US)
  Receive Date: 20221207
  Receipt Date: 20221213
  Transmission Date: 20230113
  Serious: No
  Sender: FDA-Public Use
  Company Number: US-ABBVIE-4193053

PATIENT
  Sex: Female

DRUGS (2)
  1. HUMIRA [Suspect]
     Active Substance: ADALIMUMAB
     Indication: Colitis ulcerative
     Dosage: CITRATE FREE
     Route: 058
     Dates: start: 2022
  2. HUMIRA [Suspect]
     Active Substance: ADALIMUMAB
     Indication: Product used for unknown indication

REACTIONS (5)
  - Gastritis [Not Recovered/Not Resolved]
  - Gastroenteritis viral [Recovered/Resolved]
  - Product administration error [Unknown]
  - Product preparation error [Unknown]
  - Product storage error [Recovered/Resolved]

NARRATIVE: CASE EVENT DATE: 20220101
